FAERS Safety Report 25094499 (Version 1)
Quarter: 2025Q1

REPORT INFORMATION
  Report Type: Spontaneous
  Country: US (occurrence: US)
  Receive Date: 20250319
  Receipt Date: 20250319
  Transmission Date: 20250408
  Serious: No
  Sender: MYLAN
  Company Number: US-MYLANLABS-2025M1019922

PATIENT
  Age: 67 Year
  Sex: Male

DRUGS (1)
  1. WIXELA INHUB [Suspect]
     Active Substance: FLUTICASONE PROPIONATE\SALMETEROL XINAFOATE
     Indication: Product used for unknown indication
     Dosage: 1000/100 MICROGRAM, BID (TWICE A DAY, 2 DOSES IN THE MORNING AND 2 DOSES IN THE EVENING)

REACTIONS (6)
  - Cough [Unknown]
  - Illness [Unknown]
  - Off label use [Unknown]
  - Device breakage [Unknown]
  - Device delivery system issue [Unknown]
  - Device malfunction [Unknown]

NARRATIVE: CASE EVENT DATE: 20250201
